APPROVED DRUG PRODUCT: CLINDAMYCIN PHOSPHATE
Active Ingredient: CLINDAMYCIN PHOSPHATE
Strength: EQ 1% BASE
Dosage Form/Route: GEL;TOPICAL
Application: A211872 | Product #001 | TE Code: AB1
Applicant: QUAGEN PHARMACEUTICALS LLC
Approved: Jul 29, 2020 | RLD: No | RS: No | Type: RX